FAERS Safety Report 8217524-1 (Version None)
Quarter: 2012Q1

REPORT INFORMATION
  Report Type: 
  Country: None (occurrence: None)
  Receive Date: 20120314
  Receipt Date: 20120308
  Transmission Date: 20120608
  Serious: Yes (Disabling, Other)
  Sender: FDA-Public Use
  Company Number: 2010MA003189

PATIENT
  Sex: Male
  Weight: 87.0906 kg

DRUGS (24)
  1. GENGRAF [Concomitant]
  2. IMURAN [Concomitant]
  3. FLUCONAZOLE [Concomitant]
  4. GABAPENTIN [Concomitant]
  5. SODIUM BICARBONATE [Concomitant]
  6. AMOXICILLIN [Concomitant]
  7. CEFADROXIL [Concomitant]
  8. SIMETHICONE [Concomitant]
  9. HYDROCODONE BITARTRATE AND ACETAMINOPHEN [Concomitant]
  10. DOXAZONSIN [Concomitant]
  11. COLACE [Concomitant]
  12. NEXIUM [Concomitant]
  13. DIAZEPAM [Concomitant]
  14. MECLIZINE [Concomitant]
  15. CEPHAXELIN [Concomitant]
  16. SANDIMMUNE [Concomitant]
  17. BUPROPION HCL [Concomitant]
  18. ATENOLOL [Concomitant]
  19. METOCLOPRAMIDE [Suspect]
     Indication: GASTROOESOPHAGEAL REFLUX DISEASE
     Dosage: 10 MG;QID;PO
     Route: 048
     Dates: start: 19930101, end: 20100516
  20. METOCLOPRAMIDE [Suspect]
     Indication: DIABETIC GASTROPARESIS
     Dosage: 10 MG;QID;PO
     Route: 048
     Dates: start: 19930101, end: 20100516
  21. BACTRIM [Concomitant]
  22. AZATHIOPRINE [Concomitant]
  23. BISACODYL [Concomitant]
  24. CITALOPRAM HYDROBROMIDE [Concomitant]

REACTIONS (18)
  - EMOTIONAL DISORDER [None]
  - MYOCLONUS [None]
  - DYSPHONIA [None]
  - MUSCLE RIGIDITY [None]
  - DYSKINESIA [None]
  - DYSPHAGIA [None]
  - PROTRUSION TONGUE [None]
  - MASKED FACIES [None]
  - PARKINSONISM [None]
  - EXTRAPYRAMIDAL DISORDER [None]
  - ECONOMIC PROBLEM [None]
  - AREFLEXIA [None]
  - TARDIVE DYSKINESIA [None]
  - UNEVALUABLE EVENT [None]
  - GAIT DISTURBANCE [None]
  - PERONEAL NERVE PALSY [None]
  - DIABETIC BLINDNESS [None]
  - TREMOR [None]
